FAERS Safety Report 7291761-5 (Version None)
Quarter: 2011Q1

REPORT INFORMATION
  Report Type: 
  Country: None (occurrence: None)
  Receive Date: 20110214
  Receipt Date: 20110208
  Transmission Date: 20110831
  Serious: Yes (Hospitalization)
  Sender: FDA-Public Use
  Company Number: US-PFIZER INC-2011019041

PATIENT
  Sex: Female
  Weight: 72.6 kg

DRUGS (3)
  1. CHANTIX [Suspect]
  2. NEURONTIN [Concomitant]
     Dosage: 400 MG, UNK
  3. NEURONTIN [Concomitant]
     Dosage: 100 MG, UNK
     Route: 048

REACTIONS (3)
  - OEDEMA PERIPHERAL [None]
  - FIBULA FRACTURE [None]
  - PAIN IN EXTREMITY [None]
